FAERS Safety Report 18068518 (Version 1)
Quarter: 2020Q3

REPORT INFORMATION
  Report Type: Spontaneous
  Country: US (occurrence: US)
  Receive Date: 20200724
  Receipt Date: 20200724
  Transmission Date: 20201103
  Serious: No
  Sender: FDA-Public Use
  Company Number: US-PFIZER INC-2019382797

PATIENT
  Age: 64 Year
  Sex: Female

DRUGS (1)
  1. XELJANZ XR [Suspect]
     Active Substance: TOFACITINIB CITRATE
     Indication: GRANULOMA ANNULARE
     Dosage: 11 MG

REACTIONS (4)
  - Product use in unapproved indication [Unknown]
  - Seasonal allergy [Unknown]
  - Drug effective for unapproved indication [Unknown]
  - Off label use [Unknown]
